FAERS Safety Report 22184701 (Version 1)
Quarter: 2023Q2

REPORT INFORMATION
  Report Type: Spontaneous
  Country: JP (occurrence: JP)
  Receive Date: 20230407
  Receipt Date: 20230407
  Transmission Date: 20230721
  Serious: Yes (Hospitalization, Other)
  Sender: FDA-Public Use
  Company Number: JP-BAXTER-2023BAX012095

PATIENT
  Sex: Male

DRUGS (1)
  1. REGUNEAL LCA [Suspect]
     Active Substance: CALCIUM CHLORIDE\DEXTROSE MONOHYDRATE\HYDROCHLORIC ACID\MAGNESIUM CHLORIDE\SODIUM BICARBONATE\SODIUM
     Indication: Chronic kidney disease
     Dosage: 1500 ML (FREQUENCY NOT REPORTED)
     Route: 033
     Dates: start: 20180328, end: 20230203

REACTIONS (1)
  - Cerebral infarction [Recovering/Resolving]

NARRATIVE: CASE EVENT DATE: 20230203
